FAERS Safety Report 4816803-5 (Version None)
Quarter: 2005Q4

REPORT INFORMATION
  Report Type: 
  Country: None (occurrence: None)
  Receive Date: 20051028
  Receipt Date: 20051017
  Transmission Date: 20060501
  Serious: Yes (Hospitalization)
  Sender: FDA-Public Use
  Company Number: B0397895A

PATIENT
  Age: 40 Year
  Sex: Male

DRUGS (3)
  1. ZIAGEN [Suspect]
  2. LOPINAVIR + RITONAVIR            (LOPINAVIR + RITONAVIR) [Suspect]
  3. TENOFOVIR               (TENOFOVIR) [Suspect]

REACTIONS (10)
  - HEART RATE INCREASED [None]
  - HICCUPS [None]
  - HISTOPLASMOSIS DISSEMINATED [None]
  - LUNG NEOPLASM [None]
  - LYMPHADENOPATHY [None]
  - PYREXIA [None]
  - RESPIRATORY RATE INCREASED [None]
  - SPLEEN DISORDER [None]
  - SPLENOMEGALY [None]
  - WEIGHT DECREASED [None]
